FAERS Safety Report 7126728-0 (Version None)
Quarter: 2010Q4

REPORT INFORMATION
  Report Type: 
  Country: None (occurrence: None)
  Receive Date: 20101129
  Receipt Date: 20101125
  Transmission Date: 20110411
  Serious: Yes (Life-Threatening, Hospitalization, Disabling, Other)
  Sender: FDA-Public Use
  Company Number: PHHO2008FR13586

PATIENT
  Sex: Female
  Weight: 48 kg

DRUGS (1)
  1. STI571/CGP57148B T35717+CAPS [Suspect]
     Indication: GASTROINTESTINAL STROMAL TUMOUR
     Dosage: 400 MG, QD
     Route: 048
     Dates: start: 20070730, end: 20081108

REACTIONS (36)
  - ABDOMINAL PAIN UPPER [None]
  - ANGIOPATHY [None]
  - ASPERGILLOSIS [None]
  - ASTHENIA [None]
  - CARDIAC VALVE DISEASE [None]
  - CARDIOMYOPATHY [None]
  - CARDIOPULMONARY FAILURE [None]
  - DIARRHOEA [None]
  - DISORIENTATION [None]
  - HAEMODIALYSIS [None]
  - HAEMORRHAGE [None]
  - HAEMOSTASIS [None]
  - HAEMOTHORAX [None]
  - HYPOVOLAEMIC SHOCK [None]
  - INFLAMMATION [None]
  - LEFT VENTRICULAR FAILURE [None]
  - LEGIONELLA INFECTION [None]
  - LUNG DISORDER [None]
  - MALNUTRITION [None]
  - MASTOIDITIS [None]
  - MITRAL VALVE INCOMPETENCE [None]
  - PANCREATITIS ACUTE [None]
  - PLEURAL EFFUSION [None]
  - PLEURISY [None]
  - PULMONARY OEDEMA [None]
  - PYREXIA [None]
  - RENAL CYST [None]
  - RENAL FAILURE ACUTE [None]
  - RESPIRATORY DISTRESS [None]
  - STREPTOCOCCAL INFECTION [None]
  - THORACIC CAVITY DRAINAGE [None]
  - THORACOTOMY [None]
  - URINARY TRACT INFECTION [None]
  - VIITH NERVE PARALYSIS [None]
  - WEANING FAILURE [None]
  - WEIGHT DECREASED [None]
